FAERS Safety Report 8583359-3 (Version None)
Quarter: 2012Q3

REPORT INFORMATION
  Report Type: 
  Country: None (occurrence: None)
  Receive Date: 20120809
  Receipt Date: 20120729
  Transmission Date: 20120928
  Serious: Yes (Other)
  Sender: FDA-Public Use
  Company Number: CA-MYLANLABS-2012S1015649

PATIENT
  Age: 64 Year
  Sex: Female

DRUGS (6)
  1. VENLAFAXINE PROLONGED RELEASE CAPSULES [Concomitant]
     Dates: start: 20111021
  2. AMLODIPINE [Concomitant]
     Dates: start: 20110926
  3. RABEPRAZOLE EC [Concomitant]
     Dates: start: 20111021
  4. PREMARIN [Concomitant]
     Dates: start: 20110926
  5. SYNTHROID [Concomitant]
     Dates: start: 20110926
  6. LOSARTAN POTASSIUM [Suspect]
     Indication: HYPERTENSION
     Route: 048
     Dates: start: 20120717, end: 20120722

REACTIONS (7)
  - PERIPHERAL COLDNESS [None]
  - CLAUSTROPHOBIA [None]
  - INSOMNIA [None]
  - VIITH NERVE PARALYSIS [None]
  - ANXIETY [None]
  - HYPOAESTHESIA [None]
  - CHEST DISCOMFORT [None]
